FAERS Safety Report 23797857 (Version 1)
Quarter: 2024Q2

REPORT INFORMATION
  Report Type: Spontaneous
  Country: IT (occurrence: IT)
  Receive Date: 20240430
  Receipt Date: 20240430
  Transmission Date: 20240716
  Serious: Yes (Hospitalization)
  Sender: FDA-Public Use
  Company Number: IT-MINISAL02-981149

PATIENT
  Age: 30 Year
  Sex: Male

DRUGS (3)
  1. SERTRALINE [Suspect]
     Active Substance: SERTRALINE HYDROCHLORIDE
     Indication: Intentional overdose
     Dosage: 30 DOSAGE FORM
     Route: 048
     Dates: start: 20240405, end: 20240405
  2. TALOFEN [Suspect]
     Active Substance: PROMAZINE HYDROCHLORIDE
     Indication: Intentional overdose
     Dosage: 400 MILLIGRAM
     Route: 048
     Dates: start: 20240405, end: 20240405
  3. INVEGA [Suspect]
     Active Substance: PALIPERIDONE
     Indication: Intentional overdose
     Dosage: 84 MILLIGRAM
     Route: 048
     Dates: start: 20240405, end: 20240405

REACTIONS (3)
  - Somnolence [Not Recovered/Not Resolved]
  - Hypotension [Not Recovered/Not Resolved]
  - Intentional overdose [Not Recovered/Not Resolved]

NARRATIVE: CASE EVENT DATE: 20240405
